FAERS Safety Report 9173951 (Version 1)
Quarter: 2013Q1

REPORT INFORMATION
  Report Type: Spontaneous
  Country: DE (occurrence: DE)
  Receive Date: 20130320
  Receipt Date: 20130320
  Transmission Date: 20140127
  Serious: Yes (Death, Hospitalization)
  Sender: FDA-Public Use
  Company Number: PHHY2013DE024407

PATIENT
  Age: 62 Year
  Sex: Female
  Weight: 89 kg

DRUGS (14)
  1. NAVOBAN [Suspect]
     Dosage: UNK, DAY 1, DAY 8 (WEEK 4)
     Dates: start: 20120724
  2. VINORELBINE [Suspect]
     Indication: BREAST CANCER
     Dosage: UNK
     Dates: start: 20120724
  3. CAPECITABINE [Suspect]
     Indication: BREAST CANCER
     Dosage: UNK
     Route: 048
     Dates: start: 20120724
  4. BEVACIZUMAB [Suspect]
     Indication: BREAST CANCER
     Dosage: UNK
     Route: 042
     Dates: start: 20120724, end: 20130129
  5. BEVACIZUMAB [Suspect]
     Dosage: UNK
     Route: 042
     Dates: start: 20130129
  6. IBANDRONATE [Concomitant]
     Dosage: 6 MG, (1 IN 4 WK)
     Dates: start: 20071113
  7. OMEPRAZOLE [Concomitant]
     Dosage: 20 MG, 1 IN 1 DAY
     Dates: start: 20080701
  8. METOPROLOL [Concomitant]
     Dosage: 47.5 MG, 1 IN 1 DAY
     Dates: start: 20080701
  9. LOPERAMIDE [Concomitant]
     Dosage: UNK (AS REQUIRED)
     Dates: start: 20120724
  10. MCP [Concomitant]
     Dosage: 1 DF, (AS REQUIRED)
     Dates: start: 20120724
  11. ANALGESIC                          /00509701/ [Concomitant]
     Route: 042
  12. POTASSIUM [Concomitant]
  13. POLYETHYLENE GLYCOL [Concomitant]
     Dosage: UNK
     Dates: start: 20130111
  14. LAXATIVE [Concomitant]

REACTIONS (13)
  - Death [Fatal]
  - Cholecystitis [Recovered/Resolved]
  - Vomiting [Unknown]
  - Constipation [Recovered/Resolved]
  - Abdominal pain [Unknown]
  - Diarrhoea [Unknown]
  - Hiatus hernia [Unknown]
  - Cholelithiasis [Unknown]
  - Haemorrhoids [Unknown]
  - Gastritis [Unknown]
  - Hypokalaemia [Unknown]
  - Haemoglobin increased [Unknown]
  - Blood lactate dehydrogenase increased [Unknown]
